FAERS Safety Report 18850275 (Version 1)
Quarter: 2021Q1

REPORT INFORMATION
  Report Type: Spontaneous
  Country: US (occurrence: US)
  Receive Date: 20210205
  Receipt Date: 20210205
  Transmission Date: 20210420
  Serious: No
  Sender: FDA-Public Use
  Company Number: US-ASTRAZENECA-2021A029242

PATIENT
  Sex: Male

DRUGS (2)
  1. OLAPARIB. [Suspect]
     Active Substance: OLAPARIB
     Indication: PROSTATE CANCER
     Route: 048
  2. OLAPARIB. [Suspect]
     Active Substance: OLAPARIB
     Indication: PROSTATE CANCER
     Route: 048
     Dates: start: 20201209

REACTIONS (7)
  - Candida infection [Recovering/Resolving]
  - Weight decreased [Recovering/Resolving]
  - Rash erythematous [Recovering/Resolving]
  - Nausea [Not Recovered/Not Resolved]
  - Anosmia [Recovering/Resolving]
  - Faeces hard [Recovering/Resolving]
  - Ageusia [Recovering/Resolving]

NARRATIVE: CASE EVENT DATE: 20201228
